FAERS Safety Report 14659958 (Version 4)
Quarter: 2018Q3

REPORT INFORMATION
  Report Type: Report from Study
  Country: None (occurrence: BE)
  Receive Date: 20180320
  Receipt Date: 20180814
  Transmission Date: 20181010
  Serious: Yes (Hospitalization)
  Sender: FDA-Public Use
  Company Number: BE-ABBVIE-18P-013-2286429-00

PATIENT
  Age: 88 Year
  Sex: Female
  Weight: 71 kg

DRUGS (11)
  1. BACTROBAN [Concomitant]
     Active Substance: MUPIROCIN\MUPIROCIN CALCIUM
     Indication: STOMA SITE ERYTHEMA
     Dosage: APPLICATION
     Route: 061
     Dates: start: 20161208
  2. BACTROBAN [Concomitant]
     Active Substance: MUPIROCIN\MUPIROCIN CALCIUM
     Indication: STOMA SITE PAIN
  3. MARCOUMAR [Concomitant]
     Active Substance: PHENPROCOUMON
     Route: 048
     Dates: start: 2013
  4. DUODOPA [Suspect]
     Active Substance: CARBIDOPA\LEVODOPA
     Indication: PARKINSON^S DISEASE
     Dosage: TITRATION: MD 4ML, CD 3.0 ML/H, ED 1.5 ML/DOSE, NUMBER OF EXTRA DOSES 1, 16 HR TREATMENT
     Route: 050
     Dates: start: 20160620, end: 20160623
  5. PANTOMED [Concomitant]
     Indication: PROPHYLAXIS
     Route: 048
  6. ZALDIAR [Concomitant]
     Active Substance: ACETAMINOPHEN\TRAMADOL HYDROCHLORIDE
     Indication: PAIN
     Dosage: 37.5?325 MG
     Route: 048
  7. SECTRAZIDE [Concomitant]
     Active Substance: ACEBUTOLOL\HYDROCHLOROTHIAZIDE
     Indication: HYPERTENSION
     Dosage: 200?12.5 MG
     Route: 048
     Dates: start: 20100806
  8. ATORVASTATIN [Concomitant]
     Active Substance: ATORVASTATIN
     Indication: HYPERLIPIDAEMIA
     Route: 048
     Dates: start: 2010
  9. MOVICOL [Concomitant]
     Active Substance: POLYETHYLENE GLYCOL 3350\POTASSIUM CHLORIDE\SODIUM BICARBONATE\SODIUM CHLORIDE
     Indication: CONSTIPATION
     Route: 048
     Dates: start: 20160903
  10. MARCOUMAR [Concomitant]
     Active Substance: PHENPROCOUMON
     Indication: ATRIAL FIBRILLATION
     Route: 048
     Dates: start: 2013
  11. DUODOPA [Suspect]
     Active Substance: CARBIDOPA\LEVODOPA
     Dosage: MD 7 ML, CD 3 ML/HR, ED 1.5 ML PER DOSE, 2 EXTRA DOSES PER DAY, 16 HR TREATMENT
     Route: 050

REACTIONS (1)
  - Haematoma [Recovered/Resolved]

NARRATIVE: CASE EVENT DATE: 20180310
